FAERS Safety Report 15723608 (Version 4)
Quarter: 2019Q3

REPORT INFORMATION
  Report Type: Report from Study
  Country: US (occurrence: US)
  Receive Date: 20181214
  Receipt Date: 20190718
  Transmission Date: 20191004
  Serious: Yes (Hospitalization, Other)
  Sender: FDA-Public Use
  Company Number: US-SA-2018SA338980

PATIENT
  Age: 70 Year
  Sex: Female

DRUGS (1)
  1. INSULIN GLARGINE [Suspect]
     Active Substance: INSULIN GLARGINE
     Indication: TYPE 2 DIABETES MELLITUS
     Dosage: 60 U, BID (AT NIGHT AND DAY)
     Route: 058

REACTIONS (15)
  - Cataract operation [Unknown]
  - Breast cancer female [Recovered/Resolved]
  - Memory impairment [Unknown]
  - Visual impairment [Not Recovered/Not Resolved]
  - Cerebrovascular accident [Recovered/Resolved]
  - Limb discomfort [Not Recovered/Not Resolved]
  - Neoplasm malignant [Recovered/Resolved]
  - Eye disorder [Not Recovered/Not Resolved]
  - Spinal stenosis [Not Recovered/Not Resolved]
  - Oropharyngeal pain [Not Recovered/Not Resolved]
  - Wheelchair user [Not Recovered/Not Resolved]
  - Dysgraphia [Not Recovered/Not Resolved]
  - Limb discomfort [Not Recovered/Not Resolved]
  - Amnesia [Not Recovered/Not Resolved]
  - Inappropriate schedule of product administration [Unknown]

NARRATIVE: CASE EVENT DATE: 2013
